FAERS Safety Report 6344788-1 (Version None)
Quarter: 2009Q3

REPORT INFORMATION
  Report Type: 
  Country: None (occurrence: None)
  Receive Date: 20090904
  Receipt Date: 20090819
  Transmission Date: 20100115
  Serious: Yes (Hospitalization, Other)
  Sender: FDA-Public Use
  Company Number: 2007S1006319

PATIENT
  Age: 70 Year
  Sex: Female
  Weight: 62.1428 kg

DRUGS (11)
  1. PHOSPHOSODA FLAVOR NOT SPECIFIED [Suspect]
     Indication: COLONOSCOPY
     Dosage: 90 ML; TOTAL; PO
     Route: 048
     Dates: start: 20061018, end: 20061018
  2. DULCOLAX [Suspect]
     Dosage: PO
     Route: 048
  3. CALCIUM [Concomitant]
  4. ASPIRIN [Concomitant]
  5. BENICAR HCT [Concomitant]
  6. DILTIAZEM [Concomitant]
  7. PRILOSEC [Concomitant]
  8. MULTI-VITAMIN [Concomitant]
  9. LOVAZA [Concomitant]
  10. COENZYME Q10 [Concomitant]
  11. LUMIGAN [Concomitant]

REACTIONS (17)
  - DIALYSIS [None]
  - DIZZINESS [None]
  - DRUG TOXICITY [None]
  - EATING DISORDER [None]
  - ECONOMIC PROBLEM [None]
  - FATIGUE [None]
  - FLATULENCE [None]
  - FLUID OVERLOAD [None]
  - GLOMERULONEPHRITIS [None]
  - GLOMERULONEPHRITIS RAPIDLY PROGRESSIVE [None]
  - HEADACHE [None]
  - HICCUPS [None]
  - HYPERPHOSPHATAEMIA [None]
  - INSOMNIA [None]
  - MULTIPLE INJURIES [None]
  - RENAL FAILURE ACUTE [None]
  - RENAL FAILURE CHRONIC [None]
